FAERS Safety Report 5591489-3 (Version None)
Quarter: 2008Q1

REPORT INFORMATION
  Report Type: 
  Country: None (occurrence: None)
  Receive Date: 20080115
  Receipt Date: 20071211
  Transmission Date: 20080703
  Serious: Yes (Hospitalization, Other)
  Sender: FDA-Public Use
  Company Number: PHBS2007JP18662

PATIENT
  Age: 70 Year
  Sex: Male
  Weight: 84 kg

DRUGS (4)
  1. DIOVAN [Suspect]
     Indication: HYPERTENSION
     Dosage: 80 MG/DAY
     Route: 048
     Dates: start: 20070501, end: 20071018
  2. PENTASA [Concomitant]
     Indication: COLITIS ULCERATIVE
     Dosage: 15500 MG, UNK
     Route: 048
     Dates: start: 20030701
  3. GASTER [Concomitant]
     Indication: GASTRIC ULCER
     Dosage: 40 MG, UNK
     Route: 048
     Dates: start: 20030701
  4. BIOFERMIN [Concomitant]
     Indication: COLITIS ULCERATIVE
     Dosage: 3 G, UNK
     Dates: start: 20030701

REACTIONS (7)
  - ALANINE AMINOTRANSFERASE INCREASED [None]
  - ASPARTATE AMINOTRANSFERASE INCREASED [None]
  - BLOOD ALKALINE PHOSPHATASE INCREASED [None]
  - BLOOD LACTATE DEHYDROGENASE INCREASED [None]
  - EOSINOPHIL COUNT INCREASED [None]
  - GAMMA-GLUTAMYLTRANSFERASE INCREASED [None]
  - LIVER DISORDER [None]
